FAERS Safety Report 15167299 (Version 2)
Quarter: 2018Q3

REPORT INFORMATION
  Report Type: Report from Study
  Country: US (occurrence: US)
  Receive Date: 20180719
  Receipt Date: 20180815
  Transmission Date: 20181010
  Serious: Yes (Death, Hospitalization, Other)
  Sender: FDA-Public Use
  Company Number: US-GILEAD-2018-0350114

PATIENT
  Age: 73 Year
  Sex: Male

DRUGS (3)
  1. AMBRISENTAN [Suspect]
     Active Substance: AMBRISENTAN
     Indication: PULMONARY HYPERTENSION
     Dosage: 10 MG, QD
     Route: 065
     Dates: start: 20180127
  2. XARELTO [Concomitant]
     Active Substance: RIVAROXABAN
  3. ADCIRCA [Concomitant]
     Active Substance: TADALAFIL

REACTIONS (3)
  - Haemorrhage [Unknown]
  - Death [Fatal]
  - Blood disorder [Unknown]

NARRATIVE: CASE EVENT DATE: 20180728
